FAERS Safety Report 8132063-4 (Version None)
Quarter: 2012Q1

REPORT INFORMATION
  Report Type: 
  Country: None (occurrence: None)
  Receive Date: 20120213
  Receipt Date: 20120201
  Transmission Date: 20120608
  Serious: Yes (Other)
  Sender: FDA-Public Use
  Company Number: SE-AMGEN-US201776

PATIENT
  Age: 55 Year
  Sex: Female

DRUGS (7)
  1. PREDNISOLON COMP. [Concomitant]
     Dosage: UNK UNK, UNK
  2. ETANERCEPT [Suspect]
     Indication: RHEUMATOID ARTHRITIS
     Dosage: 50 MG, 1/WK
     Route: 058
     Dates: start: 20000414, end: 20060501
  3. CALCIUM CARBONATE [Concomitant]
  4. DICLOFENAC SODIUM [Concomitant]
     Dosage: UNK UNK, UNK
  5. ATENOLOL [Concomitant]
     Dosage: UNK UNK, UNK
  6. LASIX [Concomitant]
     Dosage: UNK UNK, UNK
  7. METHOTREXATE [Suspect]
     Dosage: 7.5 MG, QWK
     Route: 048
     Dates: start: 20050401

REACTIONS (2)
  - DRUG INEFFECTIVE [None]
  - WEIGHT INCREASED [None]
